FAERS Safety Report 17646176 (Version 1)
Quarter: 2020Q2

REPORT INFORMATION
  Report Type: Spontaneous
  Country: DE (occurrence: DE)
  Receive Date: 20200408
  Receipt Date: 20200408
  Transmission Date: 20200713
  Serious: Yes (Death, Other)
  Sender: FDA-Public Use
  Company Number: DE-TEVA-2020-DE-1220291

PATIENT
  Age: 74 Year
  Sex: Female
  Weight: 115 kg

DRUGS (21)
  1. VITAMIN B12 FOLSAURE [Concomitant]
     Route: 048
  2. MAGNESIUM [Concomitant]
     Active Substance: MAGNESIUM
     Route: 048
  3. ACC [Concomitant]
     Active Substance: ACETYLCYSTEINE
     Route: 048
  4. PANTOPRAZOL [Concomitant]
     Active Substance: PANTOPRAZOLE SODIUM
     Dosage: 1-0-0
     Route: 048
  5. TAPENTADOL RETARD 50 MG [Concomitant]
     Dosage: 100 MILLIGRAM DAILY; 1-0-1
     Route: 048
  6. AMIODARON-RATIOPHARM 150 MG/3 ML INJEKTIONSLOSUNG [Suspect]
     Active Substance: AMIODARONE HYDROCHLORIDE
     Indication: ATRIAL TACHYCARDIA
     Route: 042
     Dates: start: 20200308, end: 20200310
  7. AMIODARON-RATIOPHARM 150 MG/3 ML INJEKTIONSLOSUNG [Suspect]
     Active Substance: AMIODARONE HYDROCHLORIDE
     Route: 048
     Dates: start: 20200308, end: 20200310
  8. KALIUM [Concomitant]
     Active Substance: POTASSIUM CHLORIDE
     Route: 048
  9. RAMIPRIL. [Concomitant]
     Active Substance: RAMIPRIL
     Dosage: 5 MILLIGRAM DAILY; 1-0-1
     Route: 048
  10. CALCITRIOL. [Concomitant]
     Active Substance: CALCITRIOL
     Dosage: .25 MICROGRAM DAILY; 0-0-1
     Route: 048
  11. BECLOMETASON/FORMOTEROL 100/6 UG [Concomitant]
     Dosage: 4 DOSAGE FORMS DAILY; 2-0-2
     Route: 055
  12. CHININSULFAT [Concomitant]
     Dosage: 200 MILLIGRAM DAILY; 0-0-0-1
     Route: 048
  13. PREGABALIN. [Concomitant]
     Active Substance: PREGABALIN
     Dosage: 100 MILLIGRAM DAILY; 1-0-1
     Route: 048
  14. ROSUVASTATIN. [Concomitant]
     Active Substance: ROSUVASTATIN
     Dosage: 10 MILLIGRAM DAILY; 0-0-1
     Route: 048
  15. SERTRALIN [Concomitant]
     Active Substance: SERTRALINE HYDROCHLORIDE
     Dosage: 1-0-0
     Route: 048
  16. METAMIZOL [Concomitant]
     Active Substance: METAMIZOLE SODIUM
     Dosage: 2000 MILLIGRAM DAILY; 1-1-1-1
     Route: 048
  17. METOPROLOL. [Concomitant]
     Active Substance: METOPROLOL
     Route: 048
  18. APIXABAN [Concomitant]
     Active Substance: APIXABAN
     Route: 048
  19. TORASEMID [Concomitant]
     Active Substance: TORSEMIDE
     Dosage: 10 MILLIGRAM DAILY; 1-0-0
     Route: 048
  20. QUETIAPIN [Concomitant]
     Active Substance: QUETIAPINE
     Dosage: 25 MILLIGRAM DAILY; 0-0-1
     Route: 048
  21. ASPIRIN. [Concomitant]
     Active Substance: ASPIRIN
     Route: 048

REACTIONS (2)
  - Multiple organ dysfunction syndrome [Fatal]
  - Acute hepatic failure [Fatal]

NARRATIVE: CASE EVENT DATE: 20200311
